FAERS Safety Report 8603475-7 (Version None)
Quarter: 2012Q3

REPORT INFORMATION
  Report Type: 
  Country: None (occurrence: None)
  Receive Date: 20120817
  Receipt Date: 20120802
  Transmission Date: 20120928
  Serious: Yes (Other)
  Sender: FDA-Public Use
  Company Number: CHPA2012US018221

PATIENT
  Age: 64 Year
  Sex: Female

DRUGS (6)
  1. HERBAL PREPARATION [Concomitant]
     Dosage: UNK, UNK
  2. EXCEDRIN (MIGRAINE) [Suspect]
     Indication: BACK PAIN
     Dosage: 2 DF, PRN
     Route: 048
  3. ASHWAGANDHA [Concomitant]
     Dosage: UNK, UNK
  4. CITALOPRAM HYDROBROMIDE [Concomitant]
     Dosage: UNK, UNK
  5. EXCEDRIN EXTRA STRENGTH CAPLETS [Suspect]
     Indication: ARTHRITIS
     Dosage: 2 DF, PRN
     Route: 048
  6. EXCEDRIN BACK \+ BODY CAPLETS [Suspect]
     Indication: SINUS HEADACHE
     Dosage: 2 DF, PRN
     Route: 048

REACTIONS (9)
  - PAIN [None]
  - SPINAL CORD PARALYSIS [None]
  - INTERVERTEBRAL DISC PROTRUSION [None]
  - WEIGHT INCREASED [None]
  - HAND DEFORMITY [None]
  - BASEDOW'S DISEASE [None]
  - ARTHRITIS [None]
  - SPINAL CORD COMPRESSION [None]
  - HEART RATE IRREGULAR [None]
